FAERS Safety Report 6028525-6 (Version None)
Quarter: 2009Q1

REPORT INFORMATION
  Report Type: 
  Country: None (occurrence: None)
  Receive Date: 20090106
  Receipt Date: 20081225
  Transmission Date: 20090719
  Serious: Yes (Hospitalization)
  Sender: FDA-Public Use
  Company Number: JP-EISAI MEDICAL RESEARCH-E2090-00621-SPO-JP

PATIENT
  Sex: Male
  Weight: 10 kg

DRUGS (5)
  1. EXCEGRAN [Suspect]
     Indication: EPILEPSY
     Dosage: UNKNOWN
     Route: 048
     Dates: start: 20060801, end: 20070101
  2. EXCEGRAN [Suspect]
     Route: 048
     Dates: start: 20070701
  3. MYSTAN [Concomitant]
     Indication: EPILEPSY
     Route: 048
     Dates: start: 20070101
  4. LAXOBERON [Concomitant]
     Indication: CONSTIPATION
     Route: 048
     Dates: start: 20070301
  5. DEPAKENE [Concomitant]
     Indication: EPILEPSY
     Route: 048
     Dates: start: 20070801

REACTIONS (1)
  - HAEMATURIA [None]
